FAERS Safety Report 25073189 (Version 2)
Quarter: 2025Q2

REPORT INFORMATION
  Report Type: Report from Study
  Country: US (occurrence: US)
  Receive Date: 20250313
  Receipt Date: 20250401
  Transmission Date: 20250716
  Serious: Yes (Hospitalization, Other)
  Sender: ACADIA PHARMACEUTICALS
  Company Number: US-ACADIA PHARMACEUTICALS INC.-ACA-2025-TRF-002748

PATIENT
  Age: 13 Year
  Sex: Female

DRUGS (3)
  1. DAYBUE [Suspect]
     Active Substance: TROFINETIDE
     Indication: Rett syndrome
     Dosage: 30 MILLILITER, BID
     Dates: start: 20241008
  2. LEVETIRACETAM [Concomitant]
     Active Substance: LEVETIRACETAM
  3. SUCRALFATE [Concomitant]
     Active Substance: SUCRALFATE

REACTIONS (3)
  - Seizure [Not Recovered/Not Resolved]
  - Device leakage [Not Recovered/Not Resolved]
  - Intentional dose omission [Not Recovered/Not Resolved]

NARRATIVE: CASE EVENT DATE: 20250304
